FAERS Safety Report 6115930-2 (Version None)
Quarter: 2009Q1

REPORT INFORMATION
  Report Type: 
  Country: None (occurrence: None)
  Receive Date: 20090311
  Receipt Date: 20090302
  Transmission Date: 20090719
  Serious: Yes (Hospitalization)
  Sender: FDA-Public Use
  Company Number: 1-17717111

PATIENT
  Sex: Female
  Weight: 76.8847 kg

DRUGS (1)
  1. METFORMIN HCL [Suspect]
     Indication: SUICIDE ATTEMPT
     Dosage: 76.5 GRAMS CUMULATIVE, ORAL
     Route: 048

REACTIONS (16)
  - ABDOMINAL PAIN UPPER [None]
  - BLOOD ALBUMIN DECREASED [None]
  - BLOOD CREATININE INCREASED [None]
  - BLOOD POTASSIUM INCREASED [None]
  - BLOOD SODIUM DECREASED [None]
  - DRUG TOXICITY [None]
  - HAEMODIALYSIS [None]
  - INTENTIONAL OVERDOSE [None]
  - LEUKOCYTOSIS [None]
  - METABOLIC ACIDOSIS [None]
  - NAUSEA [None]
  - PO2 INCREASED [None]
  - PROTEIN TOTAL DECREASED [None]
  - SUICIDAL IDEATION [None]
  - VOMITING [None]
  - VON WILLEBRAND'S FACTOR ANTIGEN INCREASED [None]
